FAERS Safety Report 17158412 (Version 1)
Quarter: 2019Q4

REPORT INFORMATION
  Report Type: Spontaneous
  Country: US (occurrence: US)
  Receive Date: 20191122
  Receipt Date: 20191122
  Transmission Date: 20200122
  Serious: No
  Sender: FDA-Public Use
  Company Number: None

PATIENT
  Age: 40 Year
  Sex: Male

DRUGS (1)
  1. TOBI PODHALER [Suspect]
     Active Substance: TOBRAMYCIN
     Dosage: ?          OTHER ROUTE:OTHER?

REACTIONS (2)
  - Oxygen saturation decreased [None]
  - Pyrexia [None]

NARRATIVE: CASE EVENT DATE: 20191122
